FAERS Safety Report 19204993 (Version 1)
Quarter: 2021Q2

REPORT INFORMATION
  Report Type: Spontaneous
  Country: US (occurrence: US)
  Receive Date: 20210503
  Receipt Date: 20210503
  Transmission Date: 20210717
  Serious: No
  Sender: FDA-Public Use
  Company Number: US-009507513-2104USA002137

PATIENT
  Sex: Female

DRUGS (2)
  1. JANUMET [Suspect]
     Active Substance: METFORMIN HYDROCHLORIDE\SITAGLIPTIN PHOSPHATE
     Indication: TYPE 2 DIABETES MELLITUS
     Route: 048
  2. OMEPRAZOLE. [Concomitant]
     Active Substance: OMEPRAZOLE

REACTIONS (11)
  - Product container seal issue [Unknown]
  - Product physical issue [Unknown]
  - Product taste abnormal [Unknown]
  - Heart rate increased [Recovering/Resolving]
  - Poor quality product administered [Unknown]
  - Discomfort [Recovering/Resolving]
  - Feeling abnormal [Recovering/Resolving]
  - Nausea [Recovering/Resolving]
  - Product dose omission issue [Unknown]
  - Insomnia [Recovering/Resolving]
  - Product packaging issue [Unknown]

NARRATIVE: CASE EVENT DATE: 20210405
